FAERS Safety Report 7492393-6 (Version None)
Quarter: 2011Q2

REPORT INFORMATION
  Report Type: 
  Country: None (occurrence: None)
  Receive Date: 20110519
  Receipt Date: 20110506
  Transmission Date: 20111010
  Serious: Yes (Other)
  Sender: FDA-Public Use
  Company Number: US-BAYER-2010-002504

PATIENT
  Age: 48 Year
  Sex: Female
  Weight: 77.551 kg

DRUGS (6)
  1. FERROUS SULFATE TAB [Concomitant]
  2. CALCIUM CARBONATE [Concomitant]
  3. GINKGO BILOBA [Concomitant]
  4. VITAMIN C [Concomitant]
  5. YAZ [Suspect]
     Indication: PRODUCT USED FOR UNKNOWN INDICATION
     Dosage: UNK
     Dates: start: 20060901, end: 20061001
  6. MULTI-VITAMIN [Concomitant]

REACTIONS (3)
  - PULMONARY EMBOLISM [None]
  - DEEP VEIN THROMBOSIS [None]
  - PAIN [None]
